FAERS Safety Report 7198467-1 (Version None)
Quarter: 2010Q4

REPORT INFORMATION
  Report Type: 
  Country: None (occurrence: None)
  Receive Date: 20101227
  Receipt Date: 20101125
  Transmission Date: 20110411
  Serious: Yes (Hospitalization, Other)
  Sender: FDA-Public Use
  Company Number: DE-ACTELION-A-US2010-41912

PATIENT

DRUGS (2)
  1. ILOPROST INHALATION ROW [Suspect]
     Indication: PULMONARY HYPERTENSION
     Dosage: 2.5 UG, 6 X DAY
     Route: 055
     Dates: start: 20101023, end: 20101115
  2. SILDENAFIL CITRATE [Concomitant]
     Dosage: UNK
     Route: 048
     Dates: end: 20101101

REACTIONS (2)
  - ACUTE MYOCARDIAL INFARCTION [None]
  - LEFT VENTRICULAR FAILURE [None]
